FAERS Safety Report 24805398 (Version 1)
Quarter: 2025Q1

REPORT INFORMATION
  Report Type: Spontaneous
  Country: US (occurrence: US)
  Receive Date: 20250103
  Receipt Date: 20250103
  Transmission Date: 20250408
  Serious: Yes (Hospitalization, Other)
  Sender: ALEXION PHARMACEUTICALS
  Company Number: US-ASTRAZENECA-202412USA024005US

PATIENT

DRUGS (3)
  1. FASLODEX [Suspect]
     Active Substance: FULVESTRANT
     Indication: Breast cancer metastatic
     Route: 065
  2. FASLODEX [Suspect]
     Active Substance: FULVESTRANT
  3. IBRANCE [Suspect]
     Active Substance: PALBOCICLIB
     Indication: Breast cancer
     Dosage: TAKE 1 TABLET DAILY FOR 21 DAYS FOLLOWED BY 7 DAYS OFF
     Route: 065

REACTIONS (10)
  - Cerebrovascular accident [Unknown]
  - Complex regional pain syndrome [Unknown]
  - Ablepharon macrostomia syndrome [Unknown]
  - Mental disorder [Unknown]
  - Balance disorder [Unknown]
  - Vision blurred [Unknown]
  - Gait disturbance [Unknown]
  - Oropharyngeal discomfort [Unknown]
  - Trigeminal neuralgia [Unknown]
  - Urinary incontinence [Unknown]
